FAERS Safety Report 13088761 (Version 1)
Quarter: 2017Q1

REPORT INFORMATION
  Report Type: Spontaneous
  Country: US (occurrence: US)
  Receive Date: 20170105
  Receipt Date: 20170105
  Transmission Date: 20170428
  Serious: Yes (Hospitalization)
  Sender: FDA-Public Use
  Company Number: None

PATIENT
  Age: 71 Year
  Sex: Female
  Weight: 72.64 kg

DRUGS (7)
  1. PROTONIX [Concomitant]
     Active Substance: PANTOPRAZOLE SODIUM
  2. RHINOCORT ALLERGY [Concomitant]
     Active Substance: BUDESONIDE
  3. HYOSCYAMINE 0.125MG TAB SL VIRTUS PHARMACE [Suspect]
     Active Substance: HYOSCYAMINE
     Indication: ABDOMINAL PAIN
     Dosage: 0.125 1 TABLET 3 TO 4 TIMES/DAY AS NEEDED  U NDER THE TONGUE?
     Route: 060
     Dates: start: 20160513, end: 20160909
  4. XARELTO [Concomitant]
     Active Substance: RIVAROXABAN
  5. TOPROL XL [Concomitant]
     Active Substance: METOPROLOL SUCCINATE
  6. GABAPENTIN. [Concomitant]
     Active Substance: GABAPENTIN
  7. VITAMIN D3 [Concomitant]
     Active Substance: CHOLECALCIFEROL

REACTIONS (2)
  - Pulmonary embolism [None]
  - Product use issue [None]

NARRATIVE: CASE EVENT DATE: 20160913
